FAERS Safety Report 15082845 (Version 2)
Quarter: 2018Q4

REPORT INFORMATION
  Report Type: Spontaneous
  Country: JP (occurrence: JP)
  Receive Date: 20180628
  Receipt Date: 20181004
  Transmission Date: 20190204
  Serious: Yes (Other)
  Sender: FDA-Public Use
  Company Number: JP-ASTELLAS-2018US029309

PATIENT
  Age: 70 Year
  Sex: Female

DRUGS (2)
  1. ERLOTINIB [Suspect]
     Active Substance: ERLOTINIB
     Indication: LUNG ADENOCARCINOMA
     Route: 048
     Dates: start: 20180529, end: 20180613
  2. DESALEX [Concomitant]
     Active Substance: DESLORATADINE
     Indication: PRODUCT USED FOR UNKNOWN INDICATION
     Dosage: UNK UNK, UNKNOWN FREQ.
     Route: 065

REACTIONS (11)
  - Mouth haemorrhage [Unknown]
  - Swelling of eyelid [Unknown]
  - Peripheral swelling [Unknown]
  - Pain of skin [Unknown]
  - Erythema [Unknown]
  - Blood bilirubin increased [Unknown]
  - Dermatitis acneiform [Recovering/Resolving]
  - Paronychia [Unknown]
  - Stomatitis [Unknown]
  - Facial pain [Unknown]
  - Inflammation [Unknown]

NARRATIVE: CASE EVENT DATE: 20180601
